FAERS Safety Report 6960862-0 (Version None)
Quarter: 2010Q3

REPORT INFORMATION
  Report Type: 
  Country: None (occurrence: None)
  Receive Date: 20100823
  Receipt Date: 20100708
  Transmission Date: 20110219
  Serious: No
  Sender: FDA-Public Use
  Company Number: 015299

PATIENT
  Sex: Female
  Weight: 79.3 kg

DRUGS (5)
  1. CIMZIA [Suspect]
     Indication: CROHN'S DISEASE
     Dosage: 400 MG 1X/4 WEEKS SUBCUTANEOUS
     Route: 058
     Dates: start: 20100301
  2. VITAMIN B-12 [Concomitant]
  3. TRAZODONE HCL [Concomitant]
  4. ZYPREXA [Concomitant]
  5. CYMBALTA [Concomitant]

REACTIONS (1)
  - FISTULA [None]
